FAERS Safety Report 6521473-4 (Version None)
Quarter: 2009Q4

REPORT INFORMATION
  Report Type: 
  Country: None (occurrence: None)
  Receive Date: 20091230
  Receipt Date: 20091022
  Transmission Date: 20100525
  Serious: No
  Sender: FDA-Public Use
  Company Number: US-BAYER-200917792BCC

PATIENT
  Sex: Female

DRUGS (3)
  1. ALEVE [Suspect]
     Indication: PYREXIA
     Dosage: TOTAL DAILY DOSE: 880 MG  UNIT DOSE: 220 MG
     Route: 048
     Dates: start: 20091022
  2. AMOXICILLIN [Concomitant]
     Route: 065
     Dates: end: 20091021
  3. TYLENOL (CAPLET) [Concomitant]
     Indication: PYREXIA
     Route: 065
     Dates: start: 20091022

REACTIONS (1)
  - NO ADVERSE EVENT [None]
